FAERS Safety Report 9845165 (Version 1)
Quarter: 2014Q1

REPORT INFORMATION
  Report Type: Spontaneous
  Country: IL (occurrence: IL)
  Receive Date: 20140127
  Receipt Date: 20140127
  Transmission Date: 20141002
  Serious: Yes (Other)
  Sender: FDA-Public Use
  Company Number: IL-AMGEN-ISRSP2014005138

PATIENT
  Sex: Female

DRUGS (3)
  1. ENBREL [Suspect]
     Indication: PSORIATIC ARTHROPATHY
     Dosage: 50 MG, WEEKLY
     Route: 065
     Dates: start: 20100726
  2. ADVIL                              /00044201/ [Concomitant]
     Dosage: UNK
  3. ARCOXIA [Concomitant]
     Dosage: UNK

REACTIONS (2)
  - Pyoderma gangrenosum [Unknown]
  - Condition aggravated [Unknown]
